FAERS Safety Report 19083777 (Version 18)
Quarter: 2024Q3

REPORT INFORMATION
  Report Type: Report from Study
  Country: CA (occurrence: CA)
  Receive Date: 20210401
  Receipt Date: 20240906
  Transmission Date: 20241017
  Serious: Yes (Other)
  Sender: ASTELLAS
  Company Number: CA-ASTELLAS-2021US011449

PATIENT
  Age: 43 Year
  Sex: Female

DRUGS (302)
  1. MIRABEGRON [Suspect]
     Active Substance: MIRABEGRON
     Indication: Migraine
     Dosage: 1 DF, ONCE DAILY PROLONGED-RELEASE TABLET
     Route: 048
  2. MIRABEGRON [Suspect]
     Active Substance: MIRABEGRON
     Dosage: 1 DF, ONCE DAILY (1 EVERY 1 DAYS) PROLONGED-RELEASE TABLET
     Route: 048
  3. MIRABEGRON [Suspect]
     Active Substance: MIRABEGRON
     Dosage: 1 DF, ONCE DAILY (1 EVERY 1 DAYS)
     Route: 048
  4. MIRABEGRON [Suspect]
     Active Substance: MIRABEGRON
     Dosage: 1 DF, EVERY 2 DAYS, PROLONGED-RELEASE TABLET
     Route: 048
  5. MIRABEGRON [Suspect]
     Active Substance: MIRABEGRON
     Dosage: 1 DF, (1 EVERY 1 DAYS) PROLONGED-RELEASE TABLET
     Route: 065
  6. MIRABEGRON [Suspect]
     Active Substance: MIRABEGRON
     Dosage: 1 DF, ONCE DAILY (1 EVERY 1 DAYS
     Route: 048
  7. MIRABEGRON [Suspect]
     Active Substance: MIRABEGRON
     Dosage: PROLONGED-RELEASE TABLET
     Route: 048
  8. MIRABEGRON [Suspect]
     Active Substance: MIRABEGRON
     Dosage: TABLET (EXTENDED-RELEASE
     Route: 048
  9. AIMOVIG [Suspect]
     Active Substance: ERENUMAB-AOOE
     Indication: Migraine
     Dosage: 1 DF, ONCE DAILY
     Route: 065
  10. AIMOVIG [Suspect]
     Active Substance: ERENUMAB-AOOE
     Indication: Migraine
     Dosage: UNK UNK, UNKNOWN FREQ.
     Route: 065
  11. AIMOVIG [Suspect]
     Active Substance: ERENUMAB-AOOE
     Dosage: 1 DF, ONCE DAILY
     Route: 065
  12. ATOMOXETINE HYDROCHLORIDE [Suspect]
     Active Substance: ATOMOXETINE HYDROCHLORIDE
     Indication: Migraine
     Dosage: 1 DF, ONCE DAILY (1 EVERY 1 DAYS)
     Route: 005
  13. ATOMOXETINE HYDROCHLORIDE [Suspect]
     Active Substance: ATOMOXETINE HYDROCHLORIDE
     Dosage: 1 DF, UNKNOWN FREQ.
     Route: 005
  14. ATOMOXETINE HYDROCHLORIDE [Suspect]
     Active Substance: ATOMOXETINE HYDROCHLORIDE
     Dosage: 1 DF, ONCE DAILY (1 EVERY 1 DAYS)
     Route: 005
  15. ATOMOXETINE [Suspect]
     Active Substance: ATOMOXETINE HYDROCHLORIDE
     Indication: Migraine
     Dosage: 1 DF, ONCE DAILY (1 EVERY 1 DAYS)
     Route: 065
  16. ATOMOXETINE [Suspect]
     Active Substance: ATOMOXETINE HYDROCHLORIDE
     Dosage: 1 DF, OTHER (1 EVERY 2 DAYS)
     Route: 065
  17. ATOMOXETINE [Suspect]
     Active Substance: ATOMOXETINE HYDROCHLORIDE
     Indication: Migraine
     Dosage: 1 DF, ONCE DAILY (1 EVERY 1 DAYS)
     Route: 065
  18. FLUTICASONE FUROATE [Suspect]
     Active Substance: FLUTICASONE FUROATE
     Indication: Product used for unknown indication
     Dosage: 1 DF, ONCE DAILY (1 EVERY 1 DAYS)
     Route: 065
  19. FLUTICASONE FUROATE [Suspect]
     Active Substance: FLUTICASONE FUROATE
     Dosage: UNK UNK, UNKNOWN FREQ.
     Route: 065
  20. FLUTICASONE FUROATE [Suspect]
     Active Substance: FLUTICASONE FUROATE
     Dosage: UNK UNK, UNKNOWN FREQ.
     Route: 065
  21. FLUTICASONE FUROATE [Suspect]
     Active Substance: FLUTICASONE FUROATE
     Indication: Product used for unknown indication
     Dosage: 1 DF, ONCE DAILY (1 EVERY 1 DAYS), FORMULATION: SPRAY METERED DOSE
     Route: 065
  22. BETAMETHASONE VALERATE [Suspect]
     Active Substance: BETAMETHASONE VALERATE
     Indication: Product used for unknown indication
     Dosage: 1 DF, ONCE DAILY (1 EVERY 1 DAY)
     Route: 065
  23. BETAMETHASONE VALERATE [Suspect]
     Active Substance: BETAMETHASONE VALERATE
     Dosage: UNK UNK, UNKNOWN FREQ.
     Route: 065
  24. BETAMETHASONE VALERATE [Suspect]
     Active Substance: BETAMETHASONE VALERATE
     Dosage: 1 DF, OTHER (1 EVERY 2 DAYS)
     Route: 065
  25. BETAMETHASONE VALERATE [Suspect]
     Active Substance: BETAMETHASONE VALERATE
     Dosage: 1 DF, ONCE DAILY (1 EVERY 1 DAY)
     Route: 065
  26. BETAMETHASONE VALERATE [Suspect]
     Active Substance: BETAMETHASONE VALERATE
     Dosage: 2 DF, ONCE DAILY
     Route: 065
  27. BETAMETHASONE VALERATE [Suspect]
     Active Substance: BETAMETHASONE VALERATE
     Route: 065
  28. BETAMETHASONE VALERATE [Suspect]
     Active Substance: BETAMETHASONE VALERATE
     Indication: Product used for unknown indication
     Dosage: 1 DF, ONCE DAILY (1 EVERY 1 DAYS, 361 DAYS)
     Route: 065
  29. BOTOX [Suspect]
     Active Substance: ONABOTULINUMTOXINA
     Indication: Migraine
     Dosage: UNK UNK, ONCE DAILY (SINGLE), POWDER FOR SOLUTION
     Route: 065
  30. BUTRANS [Suspect]
     Active Substance: BUPRENORPHINE
     Indication: Product used for unknown indication
     Dosage: PATCH
     Route: 065
  31. CETIRIZINE HYDROCHLORIDE\PSEUDOEPHEDRINE HYDROCHLORIDE [Suspect]
     Active Substance: CETIRIZINE HYDROCHLORIDE\PSEUDOEPHEDRINE HYDROCHLORIDE
     Indication: Product used for unknown indication
     Dosage: 1 DF, ONCE DAILY (1 EVERY 1 DAYS)
     Route: 065
  32. CYCLOBENZAPRINE HYDROCHLORIDE [Suspect]
     Active Substance: CYCLOBENZAPRINE HYDROCHLORIDE
     Indication: Product used for unknown indication
     Dosage: 1 DF, ONCE DAILY (1 EVERY 1 DAYS)
     Route: 065
  33. CYCLOBENZAPRINE HYDROCHLORIDE [Suspect]
     Active Substance: CYCLOBENZAPRINE HYDROCHLORIDE
     Dosage: 1 DF, OTHER (1 EVERY 2 DAYS)
     Route: 065
  34. CYCLOBENZAPRINE HYDROCHLORIDE [Suspect]
     Active Substance: CYCLOBENZAPRINE HYDROCHLORIDE
     Dosage: 1 DF, ONCE DAILY (1 EVERY 1 DAYS)
     Route: 065
  35. DOMPERIDONE\RABEPRAZOLE [Suspect]
     Active Substance: DOMPERIDONE\RABEPRAZOLE
     Indication: Product used for unknown indication
     Dosage: UNK UNK, ONCE DAILY (1 EVERY 1 DAYS)
     Route: 065
  36. DOMPERIDONE\RABEPRAZOLE [Suspect]
     Active Substance: DOMPERIDONE\RABEPRAZOLE
     Dosage: 3 DF, UNKNOWN FREQ.
     Route: 065
  37. FETZIMA [Suspect]
     Active Substance: LEVOMILNACIPRAN HYDROCHLORIDE
     Indication: Product used for unknown indication
     Dosage: 1 DF, ONCE DAILY (1 EVERY 1 DAYS)
     Route: 065
  38. FETZIMA [Suspect]
     Active Substance: LEVOMILNACIPRAN HYDROCHLORIDE
     Dosage: 1 DF, OTHER (1 EVERY 2 DAYS)
     Route: 065
  39. FETZIMA [Suspect]
     Active Substance: LEVOMILNACIPRAN HYDROCHLORIDE
     Dosage: 1 DF, ONCE DAILY (1 EVERY 1 DAYS)
     Route: 065
  40. FINACEA [Suspect]
     Active Substance: AZELAIC ACID
     Indication: Product used for unknown indication
     Dosage: UNK UNK, UNKNOWN FREQ.
     Route: 065
  41. FINACEA [Suspect]
     Active Substance: AZELAIC ACID
     Dosage: 1 DF, ONCE DAILY (1 EVERY 1 DAYS)
     Route: 048
  42. FINACEA [Suspect]
     Active Substance: AZELAIC ACID
     Route: 048
  43. FINACEA [Suspect]
     Active Substance: AZELAIC ACID
     Dosage: 1 DF, ONCE DAILY (1 EVERY 1 DAYS)
     Route: 065
  44. FINACEA [Suspect]
     Active Substance: AZELAIC ACID
     Dosage: 1 DF, ONCE DAILY (1 EVERY 1 DAYS)
     Route: 065
  45. FINACEA [Suspect]
     Active Substance: AZELAIC ACID
     Indication: Product used for unknown indication
     Dosage: 1 DF, ONCE DAILY (1 EVERY 1 DAYS)
     Route: 065
  46. HYDROMORPHONE [Suspect]
     Active Substance: HYDROMORPHONE
     Indication: Product used for unknown indication
     Dosage: 1 DF, OTHER (1 EVERY 2 DAYS)
     Route: 065
  47. HYDROMORPHONE [Suspect]
     Active Substance: HYDROMORPHONE
     Dosage: 1 DF, ONCE DAILY (1 EVERY 1 DAYS)
     Route: 065
  48. HYDROMORPHONE [Suspect]
     Active Substance: HYDROMORPHONE
     Dosage: 1 DF, EVERY 12 HOURS
     Route: 065
  49. HYDROMORPHONE [Suspect]
     Active Substance: HYDROMORPHONE
     Dosage: 2 DF, TWICE DAILY (2 EVERY 1 DAYS)
     Route: 065
  50. HYDROMORPHONE [Suspect]
     Active Substance: HYDROMORPHONE
     Dosage: DAILY DOSE : 2?1 DF, EVERY 12 HOURS
     Route: 065
  51. HYDROMORPHONE [Suspect]
     Active Substance: HYDROMORPHONE
     Dosage: 2 DF, EVERY 12 HOURS
     Route: 065
  52. HYDROMORPHONE [Suspect]
     Active Substance: HYDROMORPHONE
     Dosage: 1 DF, OTHER (1 EVERY 2 DAYS)
     Route: 065
  53. HYDROMORPHONE [Suspect]
     Active Substance: HYDROMORPHONE
     Dosage: 1 DF, TWICE DAILY (2 EVERY 1 DAYS)
     Route: 065
  54. HYDROMORPHONE [Suspect]
     Active Substance: HYDROMORPHONE
     Dosage: UNK, UNKNOWN FREQ.
     Route: 065
  55. LAMICTAL [Suspect]
     Active Substance: LAMOTRIGINE
     Indication: Product used for unknown indication
     Dosage: 25 MG, OTHER (1 EVERY 2 DAYS)
     Route: 048
  56. LAMICTAL [Suspect]
     Active Substance: LAMOTRIGINE
     Dosage: 50 MG, OTHER (1 EVERY 2 DAYS)
     Route: 048
  57. LAMICTAL [Suspect]
     Active Substance: LAMOTRIGINE
     Dosage: 50 MG, EVERY 12 HOURS
     Route: 048
  58. LAMICTAL [Suspect]
     Active Substance: LAMOTRIGINE
     Dosage: 50 MG, ONCE DAILY (1 EVERY 1 DAYS)
     Route: 048
  59. LAMICTAL [Suspect]
     Active Substance: LAMOTRIGINE
     Dosage: 25 MG, ONCE DAILY (1 EVERY 1 DAYS)
     Route: 048
  60. LAMICTAL [Suspect]
     Active Substance: LAMOTRIGINE
     Dosage: 50 MG, TWICE DAILY (2 EVERY 1 DAYS)
     Route: 048
  61. LAMICTAL [Suspect]
     Active Substance: LAMOTRIGINE
     Dosage: 25 MG, TWICE DAILY (2 EVERY 1 DAYS)
     Route: 048
  62. LAMICTAL [Suspect]
     Active Substance: LAMOTRIGINE
     Dosage: 25 MG, OTHER (1 EVERY 2 DAYS)
     Route: 048
  63. LAMICTAL [Suspect]
     Active Substance: LAMOTRIGINE
     Dosage: 50 MG, TWICE DAILY (2 EVERY 1 DAYS)
     Route: 048
  64. LAMICTAL [Suspect]
     Active Substance: LAMOTRIGINE
     Dosage: 1 DF, CYCLIC
     Route: 065
  65. LAMICTAL [Suspect]
     Active Substance: LAMOTRIGINE
     Dosage: 50 MG, TWICE DAILY (2 EVERY 1 DAYS)
     Route: 048
  66. LAMICTAL [Suspect]
     Active Substance: LAMOTRIGINE
     Dosage: 50 MG, TWICE DAILY (2 EVERY 1 DAYS)
     Route: 048
  67. LAMICTAL [Suspect]
     Active Substance: LAMOTRIGINE
     Dosage: 50 MG, UNKNOWN FREQ.
     Route: 048
  68. LAMICTAL [Suspect]
     Active Substance: LAMOTRIGINE
     Dosage: 50 MG, UNKNOWN FREQ.
     Route: 048
  69. LAMICTAL [Suspect]
     Active Substance: LAMOTRIGINE
     Dosage: 25 MG, UNKNOWN FREQ.
     Route: 048
  70. LAMICTAL [Suspect]
     Active Substance: LAMOTRIGINE
     Route: 065
  71. LAMICTAL [Suspect]
     Active Substance: LAMOTRIGINE
     Route: 065
  72. LAMICTAL [Suspect]
     Active Substance: LAMOTRIGINE
     Indication: Product used for unknown indication
     Dosage: 50 MG, UNKNOWN FREQ.
     Route: 048
  73. LAMICTAL [Suspect]
     Active Substance: LAMOTRIGINE
     Dosage: 50 MG, TWICE DAILY (2 EVERY 1 DAYS)
     Route: 048
  74. LAMICTAL [Suspect]
     Active Substance: LAMOTRIGINE
     Dosage: 25 MG, TWICE DAILY (2 EVERY 1 DAYS)
     Route: 048
  75. NAPROXEN [Suspect]
     Active Substance: NAPROXEN
     Indication: Product used for unknown indication
     Dosage: 2 DF, TWICE DAILY (2 EVERY 1 DAYS)
     Route: 065
  76. NAPROXEN [Suspect]
     Active Substance: NAPROXEN
     Dosage: 1 DF, TWICE DAILY (2 EVERY 1 DAYS)
     Route: 065
  77. NAPROXEN [Suspect]
     Active Substance: NAPROXEN
     Dosage: 2 DF, EVERY 12 HOURS
     Route: 065
  78. NAPROXEN [Suspect]
     Active Substance: NAPROXEN
     Dosage: 2 DF, TWICE DAILY (2 EVERY 1 DAYS)
     Route: 065
  79. NAPROXEN [Suspect]
     Active Substance: NAPROXEN
     Route: 065
  80. NAPROXEN [Suspect]
     Active Substance: NAPROXEN
     Dosage: 1 DF, UNKNOWN FREQ.
     Route: 065
  81. NAPROXEN [Suspect]
     Active Substance: NAPROXEN
     Dosage: 1 DF, ONCE DAILY
     Route: 065
  82. PANTOPRAZOLE SODIUM [Suspect]
     Active Substance: PANTOPRAZOLE SODIUM
     Indication: Product used for unknown indication
     Dosage: 2 DF, ONCE DAILY (1 EVERY 1 DAYS)
     Route: 065
  83. PANTOPRAZOLE SODIUM [Suspect]
     Active Substance: PANTOPRAZOLE SODIUM
     Dosage: 1 DF, TWICE DAILY (2 EVERY 1 DAYS)
     Route: 065
  84. PANTOPRAZOLE SODIUM [Suspect]
     Active Substance: PANTOPRAZOLE SODIUM
     Dosage: 1 DF, ONCE DAILY (1 EVERY 1 DAYS)
     Route: 065
  85. RANITIDINE HYDROCHLORIDE [Suspect]
     Active Substance: RANITIDINE HYDROCHLORIDE
     Indication: Product used for unknown indication
     Dosage: UNK UNK, UNKNOWN FREQ.
     Route: 065
  86. RANITIDINE HYDROCHLORIDE [Suspect]
     Active Substance: RANITIDINE HYDROCHLORIDE
     Dosage: UNK UNK, UNKNOWN FREQ.
     Route: 065
  87. RANITIDINE HYDROCHLORIDE [Suspect]
     Active Substance: RANITIDINE HYDROCHLORIDE
     Dosage: UNK UNK, UNKNOWN FREQ.
     Route: 065
  88. TOPAMAX [Suspect]
     Active Substance: TOPIRAMATE
     Indication: Product used for unknown indication
     Dosage: 25 MG, ONCE DAILY (1 EVERY 1 DAYS)
     Route: 065
  89. TOPAMAX [Suspect]
     Active Substance: TOPIRAMATE
     Dosage: UNK UNK, UNKNOWN FREQ.
     Route: 065
  90. TOPAMAX [Suspect]
     Active Substance: TOPIRAMATE
     Dosage: 25 MG, EVERY 2 DAYS
     Route: 065
  91. TOPAMAX [Suspect]
     Active Substance: TOPIRAMATE
     Dosage: 25 MG, ONCE DAILY (1 EVERY 1 DAYS)
     Route: 065
  92. TOPICORT [Suspect]
     Active Substance: DESOXIMETASONE
     Indication: Product used for unknown indication
     Dosage: 2 DF, ONCE DAILY (2 EVERY 1 DAYS, 4 MONTHS)
     Route: 065
  93. TOPICORT [Suspect]
     Active Substance: DESOXIMETASONE
     Dosage: 25 MG, EVERY 12 HOURS
     Route: 065
  94. TOPICORT [Suspect]
     Active Substance: DESOXIMETASONE
     Dosage: 1 DF, EVERY 12 HOURS
     Route: 065
  95. TOPICORT [Suspect]
     Active Substance: DESOXIMETASONE
     Dosage: 25 MG, UNKNOWN FREQ.
     Route: 065
  96. TOPICORT [Suspect]
     Active Substance: DESOXIMETASONE
     Dosage: 3 MG, ONCE DAILY (1 EVERY 1 DAYS)
     Route: 065
  97. TOPICORT [Suspect]
     Active Substance: DESOXIMETASONE
     Dosage: 3 MG, CYCLIC
     Route: 065
  98. TOPICORT [Suspect]
     Active Substance: DESOXIMETASONE
     Dosage: 25 MG, OTHER (2 EVERY 1 DAYS)
     Route: 065
  99. TOPICORT [Suspect]
     Active Substance: DESOXIMETASONE
     Dosage: 25 MG, OTHER (2 EVERY 1 DAYS)
     Route: 065
  100. TOPICORT [Suspect]
     Active Substance: DESOXIMETASONE
     Dosage: 1 DF, OTHER (2 EVERY 1 DAYS)
     Route: 065
  101. TOPICORT [Suspect]
     Active Substance: DESOXIMETASONE
     Route: 065
  102. TOPICORT [Suspect]
     Active Substance: DESOXIMETASONE
     Route: 065
  103. TOPICORT [Suspect]
     Active Substance: DESOXIMETASONE
     Route: 065
  104. TOPICORT [Suspect]
     Active Substance: DESOXIMETASONE
     Route: 065
  105. TRAZODONE HYDROCHLORIDE [Suspect]
     Active Substance: TRAZODONE HYDROCHLORIDE
     Indication: Product used for unknown indication
     Dosage: 1 DF, ONCE DAILY (1 EVERY 1 DAYS)
     Route: 065
  106. TRAZODONE HYDROCHLORIDE [Suspect]
     Active Substance: TRAZODONE HYDROCHLORIDE
     Dosage: 1 DF, ONCE DAILY (1 EVERY 1 DAYS)
     Route: 065
  107. TRAZODONE HYDROCHLORIDE [Suspect]
     Active Substance: TRAZODONE HYDROCHLORIDE
     Dosage: 1 DF, OTHER (1 EVERY 2 DAYS)
     Route: 065
  108. TRAZODONE HYDROCHLORIDE [Suspect]
     Active Substance: TRAZODONE HYDROCHLORIDE
     Dosage: 2 DF, ONCE DAILY
     Route: 065
  109. TRAZODONE [Suspect]
     Active Substance: TRAZODONE HYDROCHLORIDE
     Indication: Product used for unknown indication
     Dosage: 1 DF, ONCE DAILY (1 EVERY 1 DAYS)
     Route: 065
  110. TRAZODONE [Suspect]
     Active Substance: TRAZODONE HYDROCHLORIDE
     Dosage: UNK UNK, UNKNOWN FREQ.
     Route: 065
  111. TRAZODONE [Suspect]
     Active Substance: TRAZODONE HYDROCHLORIDE
     Dosage: 1 DF, EVERY 2 DAYS
     Route: 065
  112. TRAZODONE [Suspect]
     Active Substance: TRAZODONE HYDROCHLORIDE
     Dosage: 1 DF, ONCE DAILY (1 EVERY 1 DAYS)
     Route: 065
  113. TRETINOIN [Suspect]
     Active Substance: TRETINOIN
     Indication: Product used for unknown indication
     Dosage: 1 DF, ONCE DAILY (1 EVERY 1 DAYS)
     Route: 065
  114. TRETINOIN [Suspect]
     Active Substance: TRETINOIN
     Dosage: UNK UNK, UNKNOWN FREQ.
     Route: 065
  115. TRETINOIN [Suspect]
     Active Substance: TRETINOIN
     Dosage: 1 DF, 1 EVERY 2 DAYS
     Route: 065
  116. TRETINOIN [Suspect]
     Active Substance: TRETINOIN
     Dosage: UNK UNK, UNKNOWN FREQ.
     Route: 065
  117. VITAMIN D3 [Suspect]
     Active Substance: CHOLECALCIFEROL
     Indication: Product used for unknown indication
     Dosage: UNK UNK, UNKNOWN FREQ.
     Route: 065
  118. VITAMIN D3 [Suspect]
     Active Substance: CHOLECALCIFEROL
     Dosage: UNK UNK, UNKNOWN FREQ.
     Route: 065
  119. VITAMIN C [Suspect]
     Active Substance: ASCORBIC ACID
     Indication: Product used for unknown indication
     Dosage: 1 DF, ONCE DAILY
     Route: 065
  120. VITAMIN C [Suspect]
     Active Substance: ASCORBIC ACID
     Dosage: UNK UNK, UNKNOWN FREQ.
     Route: 065
  121. PHOSPHORUS [Suspect]
     Active Substance: PHOSPHORUS
     Indication: Product used for unknown indication
     Dosage: 1 DF, ONCE DAILY (1 EVERY 1 DAYS)
     Route: 065
  122. MAGNESIUM [Suspect]
     Active Substance: MAGNESIUM
     Indication: Product used for unknown indication
     Dosage: 1 DF, ONCE DAILY (1 EVERY 1 DAYS)
     Route: 065
  123. CALCIUM [Suspect]
     Active Substance: CALCIUM
     Indication: Product used for unknown indication
     Dosage: 1 DF, ONCE DAILY (1 EVERY 1 DAYS)
     Route: 065
  124. CORTISONE [Suspect]
     Active Substance: CORTISONE
     Indication: Product used for unknown indication
     Dosage: 25 MG, TWICE DAILY
     Route: 065
  125. MILNACIPRAN HYDROCHLORIDE [Suspect]
     Active Substance: MILNACIPRAN HYDROCHLORIDE
     Indication: Product used for unknown indication
     Dosage: 1 DF, ONCE DAILY (1 EVERY 1 DAYS)
     Route: 065
  126. MILNACIPRAN HYDROCHLORIDE [Suspect]
     Active Substance: MILNACIPRAN HYDROCHLORIDE
     Dosage: 1 DF, OTHER (1 EVERY 2 DAYS)
     Route: 065
  127. AZELAIC ACID [Suspect]
     Active Substance: AZELAIC ACID
     Indication: Product used for unknown indication
     Dosage: UNK UNK, UNKNOWN FREQ.
     Route: 005
  128. AZELAIC ACID [Suspect]
     Active Substance: AZELAIC ACID
     Dosage: UNK UNK, TWICE DAILY (2 EVERY 1 DAY)
     Route: 065
  129. AZELAIC ACID [Suspect]
     Active Substance: AZELAIC ACID
     Dosage: 2 DF, ONCE DAILY (1 EVERY 1 DAYS)
     Route: 065
  130. CANDESARTAN CILEXETIL [Suspect]
     Active Substance: CANDESARTAN CILEXETIL
     Indication: Migraine
     Dosage: UNK UNK, UNKNOWN FREQ.
     Route: 048
  131. CETIRIZINE HYDROCHLORIDE [Suspect]
     Active Substance: CETIRIZINE HYDROCHLORIDE
     Indication: Product used for unknown indication
     Dosage: UNK UNK, UNKNOWN FREQ.
     Route: 065
  132. CETIRIZINE HYDROCHLORIDE [Suspect]
     Active Substance: CETIRIZINE HYDROCHLORIDE
     Dosage: UNK UNK, UNKNOWN FREQ.
     Route: 065
  133. CETIRIZINE HYDROCHLORIDE [Suspect]
     Active Substance: CETIRIZINE HYDROCHLORIDE
     Indication: Product used for unknown indication
     Dosage: 3 DF, ONCE DAILY (1 EVERY 1 DAYS)
     Route: 065
  134. CETIRIZINE HYDROCHLORIDE [Suspect]
     Active Substance: CETIRIZINE HYDROCHLORIDE
     Dosage: 1 DF, ONCE DAILY (1 EVERY 1 DAYS)
     Route: 065
  135. CETIRIZINE HYDROCHLORIDE [Suspect]
     Active Substance: CETIRIZINE HYDROCHLORIDE
     Dosage: 3 DF, EVERY 2 DAYS
     Route: 065
  136. CETIRIZINE HYDROCHLORIDE [Suspect]
     Active Substance: CETIRIZINE HYDROCHLORIDE
     Dosage: UNK UNK, UNKNOWN FREQ.
     Route: 048
  137. CETIRIZINE HYDROCHLORIDE [Suspect]
     Active Substance: CETIRIZINE HYDROCHLORIDE
     Dosage: UNK UNK, UNKNOWN FREQ.
     Route: 065
  138. CETIRIZINE HYDROCHLORIDE [Suspect]
     Active Substance: CETIRIZINE HYDROCHLORIDE
     Dosage: UNK, UNKNOWN FREQ.
     Route: 048
  139. CETIRIZINE HYDROCHLORIDE [Suspect]
     Active Substance: CETIRIZINE HYDROCHLORIDE
     Indication: Product used for unknown indication
     Dosage: UNK UNK, UNKNOWN FREQ.
     Route: 065
  140. DESOXIMETASONE [Suspect]
     Active Substance: DESOXIMETASONE
     Indication: Product used for unknown indication
     Dosage: 1 DF, TWICE DAILY (2 EVERY 1 DAYS)
     Route: 065
  141. DESOXIMETASONE [Suspect]
     Active Substance: DESOXIMETASONE
     Dosage: 25 MG, TWICE DAILY (2 EVERY 1 DAYS)
     Route: 065
  142. DESOXIMETASONE [Suspect]
     Active Substance: DESOXIMETASONE
     Dosage: 2 DF, OTHER (1 EVERY 1 DAY)
     Route: 065
  143. DESOXIMETASONE [Suspect]
     Active Substance: DESOXIMETASONE
     Dosage: 3 MG, ONCE DAILY (1 EVERY 1 DAYS)
     Route: 065
  144. DESOXIMETASONE [Suspect]
     Active Substance: DESOXIMETASONE
     Dosage: 3 MG, UNKNOWN FREQ.
     Route: 065
  145. DESOXIMETASONE [Suspect]
     Active Substance: DESOXIMETASONE
     Dosage: 2 DF, ONCE DAILY (2 EVERY 1 DAYS)
     Route: 065
  146. DESOXIMETASONE [Suspect]
     Active Substance: DESOXIMETASONE
     Dosage: 25 MG, TWICE DAILY (2 EVERY 1 DAYS)
     Route: 065
  147. DESOXIMETASONE [Suspect]
     Active Substance: DESOXIMETASONE
     Dosage: 2 DF, TWICE DAILY (2 EVERY 1 DAYS)
     Route: 065
  148. DOMPERIDONE MALEATE [Suspect]
     Active Substance: DOMPERIDONE MALEATE
     Indication: Product used for unknown indication
     Dosage: 1 DF, ONCE DAILY (1 EVERY 1 DAYS)
     Route: 065
  149. DOMPERIDONE MALEATE [Suspect]
     Active Substance: DOMPERIDONE MALEATE
     Dosage: 1 DF, UNKNOWN FREQ.
     Route: 065
  150. DOMPERIDONE MALEATE [Suspect]
     Active Substance: DOMPERIDONE MALEATE
     Dosage: 1 DF, ONCE DAILY (1 EVERY 1 DAYS)
     Route: 065
  151. DOMPERIDONE MALEATE [Suspect]
     Active Substance: DOMPERIDONE MALEATE
     Dosage: 3 DF, UNKNOWN FREQ.
     Route: 065
  152. DOMPERIDONE MALEATE [Suspect]
     Active Substance: DOMPERIDONE MALEATE
     Dosage: 3 DF, UNKNOWN FREQ.
     Route: 065
  153. HYDROMORPHONE HYDROCHLORIDE [Suspect]
     Active Substance: HYDROMORPHONE HYDROCHLORIDE
     Indication: Product used for unknown indication
     Dosage: 2 DF, TWICE DAILY
     Route: 065
  154. HYDROMORPHONE HYDROCHLORIDE [Suspect]
     Active Substance: HYDROMORPHONE HYDROCHLORIDE
     Dosage: 1 DF, TWICE DAILY (2 EVERY 1 DAY)
     Route: 065
  155. HYDROMORPHONE HYDROCHLORIDE [Suspect]
     Active Substance: HYDROMORPHONE HYDROCHLORIDE
     Dosage: 1 DF, UNKNOWN FREQ.
     Route: 065
  156. HYDROMORPHONE HYDROCHLORIDE [Suspect]
     Active Substance: HYDROMORPHONE HYDROCHLORIDE
     Dosage: 1 DF, OTHER (1 EVERY 2 DAYS)
     Route: 065
  157. HYDROMORPHONE HYDROCHLORIDE [Suspect]
     Active Substance: HYDROMORPHONE HYDROCHLORIDE
     Dosage: 1 DF, TWICE DAILY (2 EVERY 1 DAY)
     Route: 065
  158. HYDROMORPHONE HYDROCHLORIDE [Suspect]
     Active Substance: HYDROMORPHONE HYDROCHLORIDE
     Dosage: 1 DF, TWICE DAILY (2 EVERY 1 DAY)
     Route: 065
  159. HYDROMORPHONE HYDROCHLORIDE [Suspect]
     Active Substance: HYDROMORPHONE HYDROCHLORIDE
     Route: 065
  160. PAROXETINE [Suspect]
     Active Substance: PAROXETINE
     Indication: Product used for unknown indication
     Dosage: UNK UNK, UNKNOWN FREQ.
     Route: 065
  161. PSEUDOEPHEDRINE HYDROCHLORIDE [Suspect]
     Active Substance: PSEUDOEPHEDRINE HYDROCHLORIDE
     Indication: Product used for unknown indication
     Dosage: UNK UNK, UNKNOWN FREQ.
     Route: 065
  162. PSEUDOEPHEDRINE HYDROCHLORIDE [Suspect]
     Active Substance: PSEUDOEPHEDRINE HYDROCHLORIDE
     Dosage: UNK UNK, UNKNOWN FREQ.
     Route: 065
  163. VITAMIN D [Suspect]
     Active Substance: VITAMIN D NOS
     Indication: Product used for unknown indication
     Dosage: UNK UNK, UNKNOWN FREQ. (JAMIESON)
     Route: 065
  164. VITAMIN D3 [Suspect]
     Active Substance: CHOLECALCIFEROL
     Indication: Product used for unknown indication
     Dosage: UNK UNK, UNKNOWN FREQ.
     Route: 065
  165. VITAMIN D3 [Suspect]
     Active Substance: CHOLECALCIFEROL
     Dosage: UNK UNK, UNKNOWN FREQ.
     Route: 065
  166. CYCLOBENZAPRINE [Suspect]
     Active Substance: CYCLOBENZAPRINE
     Indication: Product used for unknown indication
     Dosage: 1 DF, OTHER (1 EVERY 2 DAYS)
     Route: 065
  167. CYCLOBENZAPRINE [Suspect]
     Active Substance: CYCLOBENZAPRINE
     Dosage: UNK UNK, UNKNOWN FREQ.
     Route: 065
  168. CYCLOBENZAPRINE [Suspect]
     Active Substance: CYCLOBENZAPRINE
     Dosage: 1 DF, ONCE DAILY (1 EVERY 1 DAYS)
     Route: 065
  169. CYCLOBENZAPRINE [Suspect]
     Active Substance: CYCLOBENZAPRINE
     Dosage: 1 DF, ONCE DAILY (1 EVERY 2 DAYS)
     Route: 065
  170. ERENUMAB-AOOE [Suspect]
     Active Substance: ERENUMAB-AOOE
     Indication: Migraine
     Dosage: UNK UNK, UNKNOWN FREQ.
     Route: 065
  171. ERENUMAB-AOOE [Suspect]
     Active Substance: ERENUMAB-AOOE
     Dosage: UNK UNK, UNKNOWN FREQ.
     Route: 065
  172. PANTOPRAZOLE [Suspect]
     Active Substance: PANTOPRAZOLE
     Indication: Product used for unknown indication
     Dosage: 2 DF, ONCE DAILY
     Route: 065
  173. PANTOPRAZOLE [Suspect]
     Active Substance: PANTOPRAZOLE
     Dosage: 1 DF, UNKNOWN FREQ.
     Route: 065
  174. PANTOPRAZOLE [Suspect]
     Active Substance: PANTOPRAZOLE
     Dosage: UNK UNK, UNKNOWN FREQ.
     Route: 065
  175. PANTOPRAZOLE [Suspect]
     Active Substance: PANTOPRAZOLE
     Dosage: 3 DF, UNKNOWN FREQ.
     Route: 065
  176. PANTOPRAZOLE [Suspect]
     Active Substance: PANTOPRAZOLE
     Dosage: 2 DF, ONCE DAILY
     Route: 065
  177. TOPIRAMATE [Suspect]
     Active Substance: TOPIRAMATE
     Indication: Migraine
     Dosage: 25 MG, ONCE DAILY (1 EVERY 1 DAYS)
     Route: 065
  178. TOPIRAMATE [Suspect]
     Active Substance: TOPIRAMATE
     Dosage: UNK UNK, UNKNOWN FREQ.
     Route: 065
  179. TOPIRAMATE [Suspect]
     Active Substance: TOPIRAMATE
     Dosage: 25 MG, ONCE DAILY  (1 EVERY 1 DAYS)
     Route: 065
  180. TOPIRAMATE [Suspect]
     Active Substance: TOPIRAMATE
     Dosage: 25 MG, ONCE DAILY (1 EVERY 1 DAYS)
     Route: 065
  181. TOPIRAMATE [Suspect]
     Active Substance: TOPIRAMATE
     Dosage: 25 MG, TWICE DAILY (1 EVERY 2 DAYS)
     Route: 065
  182. TOPIRAMATE [Suspect]
     Active Substance: TOPIRAMATE
     Dosage: 25 MG, TWICE DAILY (1 EVERY 2 DAYS)
     Route: 065
  183. TOPIRAMATE [Suspect]
     Active Substance: TOPIRAMATE
     Dosage: 3 MG, TWICE DAILY (1 EVERY 1 DAYS)
     Route: 065
  184. TOPIRAMATE [Suspect]
     Active Substance: TOPIRAMATE
     Dosage: 25 MG, ONCE DAILY (1 EVERY 1 DAYS)
     Route: 065
  185. TOPIRAMATE [Suspect]
     Active Substance: TOPIRAMATE
     Dosage: 25 MG, OTHER (2 EVERY 1 DAYS)
     Route: 065
  186. TOPIRAMATE [Suspect]
     Active Substance: TOPIRAMATE
     Dosage: 3 MG, ONCE DAILY
     Route: 065
  187. STRATTERA [Suspect]
     Active Substance: ATOMOXETINE HYDROCHLORIDE
     Indication: Migraine
     Dosage: UNK UNK, ONCE DAILY (1 EVERY 1 DAYS)
     Route: 065
  188. STRATTERA [Suspect]
     Active Substance: ATOMOXETINE HYDROCHLORIDE
     Dosage: UNK UNK, UNKNOWN FREQ.
     Route: 065
  189. STRATTERA [Suspect]
     Active Substance: ATOMOXETINE HYDROCHLORIDE
     Dosage: 3 DF, UNKNOWN FREQ.
     Route: 065
  190. CALCIUM [Suspect]
     Active Substance: CALCIUM
     Indication: Product used for unknown indication
     Dosage: UNK UNK, UNKNOWN FREQ.
     Route: 065
  191. MAGNESIUM [Suspect]
     Active Substance: MAGNESIUM
     Indication: Product used for unknown indication
     Dosage: UNK UNK, UNKNOWN FREQ.
     Route: 065
  192. PHOSPHORUS [Suspect]
     Active Substance: PHOSPHORUS
     Indication: Product used for unknown indication
     Dosage: UNK UNK, UNKNOWN FREQ.
     Route: 065
  193. BUPRENORPHINE [Suspect]
     Active Substance: BUPRENORPHINE
     Indication: Product used for unknown indication
     Dosage: UNK UNK, UNKNOWN FREQ.
     Route: 065
  194. DESOXIMETASONE [Suspect]
     Active Substance: DESOXIMETASONE
     Indication: Product used for unknown indication
     Dosage: 1 DF, TWICE DAILY (2 EVERY 1 DAYS)
     Route: 065
  195. FLUTICASONE FUROATE [Suspect]
     Active Substance: FLUTICASONE FUROATE
     Indication: Product used for unknown indication
     Dosage: 1 DF, ONCE DAILY (1 EVERY 1 DAYS)
     Route: 065
  196. LAMOTRIGINE [Suspect]
     Active Substance: LAMOTRIGINE
     Indication: Product used for unknown indication
     Dosage: 25 MG, TWICE DAILY (2 EVERY 1 DAYS)
     Route: 048
  197. LAMOTRIGINE [Suspect]
     Active Substance: LAMOTRIGINE
     Route: 048
  198. PANTOPRAZOLE SODIUM [Suspect]
     Active Substance: PANTOPRAZOLE SODIUM
     Indication: Product used for unknown indication
     Dosage: 1 DF, EVERY 12 HOURS
     Route: 065
  199. PANTOPRAZOLE SODIUM [Suspect]
     Active Substance: PANTOPRAZOLE SODIUM
     Dosage: 1 DF, TWICE DAILY (2 EVERY 1 DAYS)
     Route: 065
  200. CETIRIZINE HYDROCHLORIDE [Suspect]
     Active Substance: CETIRIZINE HYDROCHLORIDE
     Indication: Product used for unknown indication
     Dosage: UNK UNK, UNKNOWN FREQ.
     Route: 065
  201. CETIRIZINE HYDROCHLORIDE\PSEUDOEPHEDRINE HYDROCHLORIDE [Suspect]
     Active Substance: CETIRIZINE HYDROCHLORIDE\PSEUDOEPHEDRINE HYDROCHLORIDE
     Indication: Product used for unknown indication
     Dosage: UNK UNK, UNKNOWN FREQ.
     Route: 065
  202. CETIRIZINE HYDROCHLORIDE\PSEUDOEPHEDRINE HYDROCHLORIDE [Suspect]
     Active Substance: CETIRIZINE HYDROCHLORIDE\PSEUDOEPHEDRINE HYDROCHLORIDE
     Dosage: UNK, UNKNOWN FREQ.
     Route: 065
  203. ERENUMAB [Suspect]
     Active Substance: ERENUMAB
     Indication: Migraine
     Dosage: UNK UNK, UNKNOWN FREQ.
     Route: 065
  204. ERENUMAB [Suspect]
     Active Substance: ERENUMAB
     Dosage: UNK UNK, UNKNOWN FREQ.
     Route: 065
  205. ERENUMAB [Suspect]
     Active Substance: ERENUMAB
     Dosage: UNK UNK, UNKNOWN FREQ.
     Route: 065
  206. ACETAMINOPHEN [Suspect]
     Active Substance: ACETAMINOPHEN
     Indication: Product used for unknown indication
     Dosage: UNK UNK, UNKNOWN FREQ.
     Route: 065
  207. CALCIUM GLUCONATE [Suspect]
     Active Substance: CALCIUM GLUCONATE
     Indication: Product used for unknown indication
     Dosage: UNK UNK, UNKNOWN FREQ.
     Route: 065
  208. CALCIUM PANTOTHENATE [Suspect]
     Active Substance: CALCIUM PANTOTHENATE
     Indication: Product used for unknown indication
     Dosage: 1 DF, UNKNOWN FREQ.
     Route: 065
  209. CANDESARTAN [Suspect]
     Active Substance: CANDESARTAN
     Indication: Migraine
     Dosage: UNK UNK, UNKNOWN FREQ.
     Route: 048
  210. CANDESARTAN [Suspect]
     Active Substance: CANDESARTAN
     Dosage: UNK UNK, UNKNOWN FREQ.
     Route: 048
  211. ERGOCALCIFEROL [Suspect]
     Active Substance: ERGOCALCIFEROL
     Indication: Product used for unknown indication
     Dosage: 1 DF, UNKNOWN FREQ.
     Route: 065
  212. ERGOCALCIFEROL [Suspect]
     Active Substance: ERGOCALCIFEROL
     Dosage: UNK, UNKNOWN FREQ.
     Route: 065
  213. HYDROCORTISONE ACETATE [Suspect]
     Active Substance: HYDROCORTISONE ACETATE
     Indication: Product used for unknown indication
     Dosage: UNK UNK, TWICE DAILY (2 EVERY 1 DAYS)
     Route: 065
  214. HYDROCORTISONE ACETATE [Suspect]
     Active Substance: HYDROCORTISONE ACETATE
     Dosage: 25 MG, ONCE DAILY  (1 EVERY 1 DAYS)
     Route: 065
  215. HYDROCORTISONE ACETATE [Suspect]
     Active Substance: HYDROCORTISONE ACETATE
     Dosage: 25 MG, TWICE DAILY (2 EVERY 1 DAYS)
     Route: 065
  216. HYDROCORTISONE ACETATE [Suspect]
     Active Substance: HYDROCORTISONE ACETATE
     Dosage: 25 MG, ONCE DAILY  (1 EVERY 1 DAYS)
     Route: 065
  217. PAROXETINE HYDROCHLORIDE [Suspect]
     Active Substance: PAROXETINE HYDROCHLORIDE\PAROXETINE HYDROCHLORIDE ANHYDROUS
     Indication: Product used for unknown indication
     Dosage: UNK UNK, UNKNOWN FREQ.
     Route: 065
  218. RANITIDINE [Suspect]
     Active Substance: RANITIDINE
     Indication: Product used for unknown indication
     Dosage: UNK UNK, UNKNOWN FREQ.
     Route: 065
  219. RANITIDINE [Suspect]
     Active Substance: RANITIDINE
     Dosage: UNK UNK, UNKNOWN FREQ.
     Route: 065
  220. ATOMOXETINE HYDROCHLORIDE [Suspect]
     Active Substance: ATOMOXETINE HYDROCHLORIDE
     Indication: Migraine
     Dosage: 1 DF, ONCE DAILY (1 EVERY 1 DAYS)
     Route: 005
  221. ATOMOXETINE HYDROCHLORIDE [Suspect]
     Active Substance: ATOMOXETINE HYDROCHLORIDE
     Dosage: 1 DF, OTHER (1 EVERY 2 DAYS)
     Route: 005
  222. ATOMOXETINE HYDROCHLORIDE [Suspect]
     Active Substance: ATOMOXETINE HYDROCHLORIDE
     Dosage: 1 DF, ONCE DAILY (1 EVERY 1 DAYS)
     Route: 005
  223. CALCIUM PANTOTHENATE [Suspect]
     Active Substance: CALCIUM PANTOTHENATE
     Indication: Product used for unknown indication
     Dosage: 1 DF, UNKNOWN FREQ.
     Route: 065
  224. DESOXIMETASONE [Suspect]
     Active Substance: DESOXIMETASONE
     Indication: Product used for unknown indication
     Dosage: 25 MG, TWICE DAILY (2 EVERY 1 DAYS)
     Route: 065
  225. DESOXIMETASONE [Suspect]
     Active Substance: DESOXIMETASONE
     Dosage: 25 MG, TWICE DAILY (2 EVERY 1 DAYS)
     Route: 065
  226. DOMPERIDONE [Suspect]
     Active Substance: DOMPERIDONE
     Indication: Product used for unknown indication
     Dosage: 1 DF, ONCE DAILY
     Route: 065
  227. NAPROXEN [Suspect]
     Active Substance: NAPROXEN
     Indication: Product used for unknown indication
     Dosage: 1 DF, ONCE DAILY (1 EVERY 1 DAYS)
     Route: 065
  228. NAPROXEN [Suspect]
     Active Substance: NAPROXEN
     Dosage: 1 DF, ONCE DAILY (1 EVERY 1 DAYS)
     Route: 065
  229. NAPROXEN [Suspect]
     Active Substance: NAPROXEN
     Dosage: 1 DF, TWICE DAILY (2 EVERY 1 DAYS)
     Route: 065
  230. NAPROXEN [Suspect]
     Active Substance: NAPROXEN
     Dosage: 2 DF, TWICE DAILY (2 EVERY 1 DAYS)
     Route: 005
  231. NAPROXEN [Suspect]
     Active Substance: NAPROXEN
     Dosage: 2 DF, OTHER (1 EVERY 2 DAYS)
     Route: 065
  232. NAPROXEN [Suspect]
     Active Substance: NAPROXEN
     Dosage: 1 DF, TWICE DAILY (2 EVERY 1 DAYS)
     Route: 065
  233. NAPROXEN [Suspect]
     Active Substance: NAPROXEN
     Dosage: 1 DF, TWICE DAILY
     Route: 065
  234. NAPROXEN [Suspect]
     Active Substance: NAPROXEN
     Dosage: 1 DF, OTHER (2 EVERY 1 DAYS)
     Route: 005
  235. NAPROXEN [Suspect]
     Active Substance: NAPROXEN
     Route: 005
  236. PAROXETINE [Suspect]
     Active Substance: PAROXETINE
     Indication: Product used for unknown indication
     Dosage: UNK UNK, UNKNOWN FREQ.
     Route: 065
  237. CETIRIZINE HYDROCHLORIDE\PSEUDOEPHEDRINE HYDROCHLORIDE [Suspect]
     Active Substance: CETIRIZINE HYDROCHLORIDE\PSEUDOEPHEDRINE HYDROCHLORIDE
     Indication: Product used for unknown indication
     Dosage: 1 DF, ONCE DAILY 1 EVERY 1 DAYS
     Route: 065
  238. HYDROCORTISONE [Suspect]
     Active Substance: HYDROCORTISONE\HYDROCORTISONE ACETATE
     Indication: Product used for unknown indication
     Dosage: UNK UNK, UNKNOWN FREQ.
     Route: 065
  239. HYDROCORTISONE [Suspect]
     Active Substance: HYDROCORTISONE\HYDROCORTISONE ACETATE
     Dosage: UNK UNK, TWICE DAILY (2 EVERY 1 DAYS)
     Route: 065
  240. HYDROCORTISONE [Suspect]
     Active Substance: HYDROCORTISONE\HYDROCORTISONE ACETATE
     Dosage: 1 DF, ONCE DAILY (1 EVERY 1 DAYS)
     Route: 065
  241. HYDROCORTISONE [Suspect]
     Active Substance: HYDROCORTISONE\HYDROCORTISONE ACETATE
     Dosage: 25 MG, ONCE DAILY
     Route: 065
  242. HYDROCORTISONE [Suspect]
     Active Substance: HYDROCORTISONE\HYDROCORTISONE ACETATE
     Dosage: DAILY DOSE : 50?25 MG, TWICE DAILY
     Route: 065
  243. PANTOPRAZOLE [Suspect]
     Active Substance: PANTOPRAZOLE
     Indication: Product used for unknown indication
     Dosage: 2 DF, ONCE DAILY (1 EVERY 1 DAYS)
     Route: 065
  244. PANTOPRAZOLE [Suspect]
     Active Substance: PANTOPRAZOLE
     Dosage: 1 DF, OTHER (1 EVERY 2 DAYS)
     Route: 065
  245. PANTOPRAZOLE [Suspect]
     Active Substance: PANTOPRAZOLE
     Dosage: 2 DF, TWICE DAILY (2 EVERY 1 DAYS)
     Route: 065
  246. PANTOPRAZOLE [Suspect]
     Active Substance: PANTOPRAZOLE
     Dosage: UNK UNK, UNKNOWN FREQ.
     Route: 065
  247. PANTOPRAZOLE [Suspect]
     Active Substance: PANTOPRAZOLE
     Dosage: 3 DF, UNKNOWN FREQ.
     Route: 065
  248. PANTOPRAZOLE [Suspect]
     Active Substance: PANTOPRAZOLE
     Route: 048
  249. PANTOPRAZOLE [Suspect]
     Active Substance: PANTOPRAZOLE
     Dosage: 1 DF, OTHER (3 EVERY 1 DAYS)
     Route: 065
  250. PANTOPRAZOLE [Suspect]
     Active Substance: PANTOPRAZOLE
     Dosage: 1 DF, OTHER (3 EVERY 1 DAYS)
     Route: 065
  251. PANTOPRAZOLE [Suspect]
     Active Substance: PANTOPRAZOLE
     Dosage: 1 DF, ONCE DAILY
     Route: 065
  252. PANTOPRAZOLE [Suspect]
     Active Substance: PANTOPRAZOLE
     Dosage: 1 DF, OTHER (2EVERY 1 DAYS)
     Route: 065
  253. PANTOPRAZOLE [Suspect]
     Active Substance: PANTOPRAZOLE
     Dosage: 1 DF, OTHER (2EVERY 1 DAYS)
     Route: 065
  254. PANTOPRAZOLE [Suspect]
     Active Substance: PANTOPRAZOLE
     Route: 065
  255. ATOMOXETINE HYDROCHLORIDE [Suspect]
     Active Substance: ATOMOXETINE HYDROCHLORIDE
     Indication: Migraine
     Dosage: 1 DF, EVERY 2 DAYS
     Route: 065
  256. DOMPERIDONE\PANTOPRAZOLE SODIUM [Suspect]
     Active Substance: DOMPERIDONE\PANTOPRAZOLE SODIUM
     Indication: Product used for unknown indication
     Dosage: 1 DF, UNKNOWN FREQ.
     Route: 065
  257. DOMPERIDONE\PANTOPRAZOLE SODIUM [Suspect]
     Active Substance: DOMPERIDONE\PANTOPRAZOLE SODIUM
     Dosage: 1 DF, OTHER (1 EVERY 2 DAYS)
     Route: 065
  258. DOMPERIDONE\PANTOPRAZOLE SODIUM [Suspect]
     Active Substance: DOMPERIDONE\PANTOPRAZOLE SODIUM
     Dosage: 3 DF, UNKNOWN FREQ.
     Route: 065
  259. DOMPERIDONE\PANTOPRAZOLE SODIUM [Suspect]
     Active Substance: DOMPERIDONE\PANTOPRAZOLE SODIUM
     Dosage: 1 DF, OTHER (1 EVERY 2 DAYS)
     Route: 065
  260. DOMPERIDONE\PANTOPRAZOLE SODIUM [Suspect]
     Active Substance: DOMPERIDONE\PANTOPRAZOLE SODIUM
     Dosage: 1 DF, OTHER (4 EVERY 2 DAYS)
     Route: 065
  261. DOMPERIDONE\PANTOPRAZOLE SODIUM [Suspect]
     Active Substance: DOMPERIDONE\PANTOPRAZOLE SODIUM
     Dosage: 3 DF, UNKNOWN FREQ.
     Route: 065
  262. DOMPERIDONE\PANTOPRAZOLE SODIUM [Suspect]
     Active Substance: DOMPERIDONE\PANTOPRAZOLE SODIUM
     Dosage: 1 DF, OTHER (4 EVERY 1 DAYS)
     Route: 065
  263. DESOXIMETASONE [Suspect]
     Active Substance: DESOXIMETASONE
     Indication: Product used for unknown indication
     Dosage: 25 MG, OTHER (2 EVERY 1 DAYS)
     Route: 065
  264. DESOXIMETASONE [Suspect]
     Active Substance: DESOXIMETASONE
     Dosage: 25 MG, OTHER (2 EVERY 1 DAYS)
     Route: 065
  265. BUTRANS [Suspect]
     Active Substance: BUPRENORPHINE
     Indication: Product used for unknown indication
     Dosage: UNK UNK, UNKNOWN FREQ.
     Route: 065
  266. VITAMIN D3 [Suspect]
     Active Substance: CHOLECALCIFEROL
     Indication: Product used for unknown indication
     Dosage: UNK UNK, UNKNOWN FREQ.
     Route: 065
  267. PYRIDOXINE HYDROCHLORIDE\RIBOFLAVIN [Suspect]
     Active Substance: PYRIDOXINE HYDROCHLORIDE\RIBOFLAVIN
     Indication: Product used for unknown indication
     Dosage: 1 DF, UNKNOWN FREQ.
     Route: 065
  268. NICOTINAMIDE [Suspect]
     Active Substance: NIACINAMIDE
     Indication: Product used for unknown indication
     Dosage: 1 DF, UNKNOWN FREQ.
     Route: 065
  269. NICOTINAMIDE [Suspect]
     Active Substance: NIACINAMIDE
     Route: 065
  270. TRICHOLINE CITRATE [Suspect]
     Active Substance: TRICHOLINE CITRATE
     Indication: Product used for unknown indication
     Dosage: UNK UNK, UNKNOWN FREQ.
     Route: 065
  271. CYANOCOBALAMIN [Suspect]
     Active Substance: CYANOCOBALAMIN
     Indication: Product used for unknown indication
     Dosage: UNK UNK, UNKNOWN FREQ.
     Route: 065
  272. CYANOCOBALAMIN [Suspect]
     Active Substance: CYANOCOBALAMIN
     Dosage: 1 DF, UNKNOWN FREQ.
     Route: 048
  273. DEXPANTHENOL [Suspect]
     Active Substance: DEXPANTHENOL
     Indication: Product used for unknown indication
     Dosage: 1 DF, UNKNOWN FREQ.
     Route: 065
  274. DEXPANTHENOL [Suspect]
     Active Substance: DEXPANTHENOL
     Route: 050
  275. DOMPERIDONE [Suspect]
     Active Substance: DOMPERIDONE
     Indication: Product used for unknown indication
     Dosage: 1 DF, THRICE DAILY
     Route: 065
  276. DOMPERIDONE [Suspect]
     Active Substance: DOMPERIDONE
     Dosage: 3 DF, UNKNOWN FREQ.
     Route: 065
  277. DOMPERIDONE [Suspect]
     Active Substance: DOMPERIDONE
     Dosage: 3 DF, UNKNOWN FREQ.
     Route: 065
  278. DOMPERIDONE [Suspect]
     Active Substance: DOMPERIDONE
     Dosage: 1 DF, 4 TIMES DAILY
     Route: 065
  279. DOMPERIDONE [Suspect]
     Active Substance: DOMPERIDONE
     Dosage: 1 DF, OTHER (1 EVERY 2 DAYS)
     Route: 065
  280. DOMPERIDONE [Suspect]
     Active Substance: DOMPERIDONE
     Dosage: 1 DF, ONCE DAILY (1 EVERY 1 DAYS)
     Route: 065
  281. DOMPERIDONE [Suspect]
     Active Substance: DOMPERIDONE
     Dosage: UNK, CYCLIC
     Route: 065
  282. FOLIC ACID [Suspect]
     Active Substance: FOLIC ACID
     Indication: Product used for unknown indication
     Dosage: 1 DF, UNKNOWN FREQ.
     Route: 065
  283. FOLIC ACID [Suspect]
     Active Substance: FOLIC ACID
     Route: 065
  284. PREDNICARBATE [Suspect]
     Active Substance: PREDNICARBATE
     Indication: Product used for unknown indication
     Dosage: UNK UNK, UNKNOWN FREQ.
     Route: 065
  285. RIBOFLAVIN [Suspect]
     Active Substance: RIBOFLAVIN
     Indication: Product used for unknown indication
     Dosage: UNK UNK, UNKNOWN FREQ.
     Route: 065
  286. RIBOFLAVIN [Suspect]
     Active Substance: RIBOFLAVIN
     Route: 065
  287. CETIRIZINE [Suspect]
     Active Substance: CETIRIZINE HYDROCHLORIDE
     Indication: Product used for unknown indication
     Dosage: 3 DF, OTHER (1 EVERY 2 DAYS
     Route: 048
  288. CETIRIZINE [Suspect]
     Active Substance: CETIRIZINE HYDROCHLORIDE
     Indication: Product used for unknown indication
     Dosage: 3 DF, ONCE DAILY
     Route: 065
  289. CETIRIZINE [Suspect]
     Active Substance: CETIRIZINE HYDROCHLORIDE
     Dosage: 1 DF, ONCE DAILY
     Route: 065
  290. CETIRIZINE [Suspect]
     Active Substance: CETIRIZINE HYDROCHLORIDE
     Dosage: UNK, UNKNOWN FREQ.
     Route: 048
  291. CETIRIZINE [Suspect]
     Active Substance: CETIRIZINE HYDROCHLORIDE
     Dosage: UNK, UNKNOWN FREQ.
     Route: 065
  292. CETIRIZINE [Suspect]
     Active Substance: CETIRIZINE HYDROCHLORIDE
     Dosage: 3 DF, ONCE DAILY
     Route: 065
  293. BOTOX [Suspect]
     Active Substance: ONABOTULINUMTOXINA
     Indication: Migraine
     Route: 065
  294. PANTOPRAZOLE [Suspect]
     Active Substance: PANTOPRAZOLE
     Indication: Product used for unknown indication
     Route: 065
  295. PANTOPRAZOLE [Suspect]
     Active Substance: PANTOPRAZOLE
     Route: 065
  296. PANTOPRAZOLE [Suspect]
     Active Substance: PANTOPRAZOLE
     Route: 065
  297. PANTOPRAZOLE [Suspect]
     Active Substance: PANTOPRAZOLE
     Route: 048
  298. PANTOPRAZOLE [Suspect]
     Active Substance: PANTOPRAZOLE
     Route: 065
  299. DOMPERIDONE\RABEPRAZOLE [Suspect]
     Active Substance: DOMPERIDONE\RABEPRAZOLE
     Indication: Product used for unknown indication
     Dosage: 3 DF, ONCE DAILY (3 EVERY 1 DAYS)
     Route: 065
  300. DOMPERIDONE\RABEPRAZOLE [Suspect]
     Active Substance: DOMPERIDONE\RABEPRAZOLE
     Dosage: 1 DF, THRICE DAILY (3 EVERY 1 DAYS)
     Route: 065
  301. DOMPERIDONE\RABEPRAZOLE [Suspect]
     Active Substance: DOMPERIDONE\RABEPRAZOLE
     Dosage: 1 DF, OTHER (1 EVERY 1 DAYS)
     Route: 065
  302. DOMPERIDONE\RABEPRAZOLE [Suspect]
     Active Substance: DOMPERIDONE\RABEPRAZOLE
     Dosage: 1 DF, EVERY 2 DAYS
     Route: 065

REACTIONS (14)
  - Epilepsy [Unknown]
  - Abdominal pain upper [Unknown]
  - Blepharospasm [Unknown]
  - Drug intolerance [Unknown]
  - Gastrooesophageal reflux disease [Unknown]
  - Hypoaesthesia [Unknown]
  - Memory impairment [Unknown]
  - Migraine [Unknown]
  - Pain [Unknown]
  - Paraesthesia [Unknown]
  - Vomiting [Unknown]
  - Taste disorder [Unknown]
  - Drug ineffective for unapproved indication [Unknown]
  - Off label use [Unknown]
